FAERS Safety Report 9153283 (Version 1)
Quarter: 2013Q1

REPORT INFORMATION
  Report Type: Spontaneous
  Country: US (occurrence: US)
  Receive Date: 20130311
  Receipt Date: 20130311
  Transmission Date: 20140127
  Serious: No
  Sender: FDA-Public Use
  Company Number: US-BIOGENIDEC-2013BI021142

PATIENT
  Sex: Male

DRUGS (2)
  1. TYSABRI [Suspect]
     Indication: MULTIPLE SCLEROSIS
     Route: 042
     Dates: start: 20120808
  2. AVONEX [Concomitant]
     Route: 030

REACTIONS (7)
  - Influenza like illness [Recovered/Resolved]
  - Pyrexia [Recovered/Resolved]
  - Chills [Recovered/Resolved]
  - Memory impairment [Recovered/Resolved]
  - Multiple sclerosis [Recovered/Resolved]
  - Hair texture abnormal [Recovered/Resolved]
  - Hair growth abnormal [Recovered/Resolved]
